FAERS Safety Report 4980715-7 (Version None)
Quarter: 2006Q2

REPORT INFORMATION
  Report Type: 
  Country: None (occurrence: None)
  Receive Date: 20060424
  Receipt Date: 20060103
  Transmission Date: 20061013
  Serious: Yes (Hospitalization)
  Sender: FDA-Public Use
  Company Number: US-MERCK-0601USA00230

PATIENT
  Sex: Male

DRUGS (6)
  1. VIOXX [Suspect]
     Indication: MUSCLE SPASMS
     Route: 048
     Dates: start: 20021201
  2. VIOXX [Suspect]
     Route: 048
     Dates: start: 20030101
  3. VIOXX [Suspect]
     Indication: INFLAMMATION
     Route: 048
     Dates: start: 20021201
  4. VIOXX [Suspect]
     Route: 048
     Dates: start: 20030101
  5. VIOXX [Suspect]
     Route: 048
     Dates: start: 20021201
  6. VIOXX [Suspect]
     Route: 048
     Dates: start: 20021201

REACTIONS (5)
  - BACK PAIN [None]
  - CHEST PAIN [None]
  - MYOCARDIAL INFARCTION [None]
  - OVERDOSE [None]
  - SPINAL DISORDER [None]
